FAERS Safety Report 9449239 (Version 2)
Quarter: 2013Q4

REPORT INFORMATION
  Report Type: Spontaneous
  Country: US (occurrence: US)
  Receive Date: 20130808
  Receipt Date: 20131105
  Transmission Date: 20140711
  Serious: Yes (Hospitalization)
  Sender: FDA-Public Use
  Company Number: US-GLAXOSMITHKLINE-A1036312A

PATIENT
  Age: 77 Year
  Sex: Female

DRUGS (8)
  1. VOTRIENT [Suspect]
     Indication: RENAL CELL CARCINOMA
     Dosage: 2TAB TWICE PER DAY
     Route: 048
     Dates: start: 201105
  2. SIMVASTATIN [Concomitant]
  3. AMLODIPINE [Concomitant]
  4. CARVEDILOL [Concomitant]
  5. EXELON [Concomitant]
     Route: 062
  6. CALCIUM [Concomitant]
  7. VITAMIN D3 [Concomitant]
  8. LEVOTHYROXINE [Concomitant]

REACTIONS (3)
  - Wound infection staphylococcal [Recovered/Resolved]
  - Impaired healing [Recovered/Resolved]
  - Dysstasia [Unknown]
